FAERS Safety Report 5823628-0 (Version None)
Quarter: 2008Q3

REPORT INFORMATION
  Report Type: 
  Country: None (occurrence: None)
  Receive Date: 20080725
  Receipt Date: 20080717
  Transmission Date: 20090109
  Serious: Yes (Other)
  Sender: FDA-Public Use
  Company Number: US-ASTRAZENECA-2008UW00353

PATIENT
  Age: 40 Year
  Sex: Female
  Weight: 114.3 kg

DRUGS (10)
  1. SEROQUEL [Suspect]
     Indication: BIPOLAR DISORDER
     Route: 048
     Dates: start: 19970101, end: 20031101
  2. SEROQUEL [Suspect]
     Route: 048
     Dates: start: 19970101, end: 20030101
  3. HALDOL [Concomitant]
     Dates: start: 20000101
  4. RISPERDAL [Concomitant]
     Dates: start: 19970101, end: 20000101
  5. PHENTERMINE [Concomitant]
     Dates: start: 20070101
  6. PROZAC [Concomitant]
  7. CELEXA [Concomitant]
  8. ZOLOFT [Concomitant]
  9. TRAZODONE HCL [Concomitant]
  10. LITHIUM CARBONATE [Concomitant]
     Dates: start: 20020101

REACTIONS (16)
  - ANXIETY DISORDER [None]
  - ARTHROPATHY [None]
  - BLOOD CHOLESTEROL INCREASED [None]
  - CYST [None]
  - EYE DISORDER [None]
  - HYPERGLYCAEMIA [None]
  - HYPERSENSITIVITY [None]
  - HYPERTENSION [None]
  - HYPOGLYCAEMIA [None]
  - HYSTERECTOMY [None]
  - OBESITY [None]
  - PITUITARY TUMOUR [None]
  - RESTLESS LEGS SYNDROME [None]
  - SLEEP APNOEA SYNDROME [None]
  - TYPE 2 DIABETES MELLITUS [None]
  - WEIGHT INCREASED [None]
